FAERS Safety Report 4667033-1 (Version None)
Quarter: 2005Q2

REPORT INFORMATION
  Report Type: 
  Country: None (occurrence: None)
  Receive Date: 20050520
  Receipt Date: 20040907
  Transmission Date: 20051028
  Serious: Yes (Other)
  Sender: FDA-Public Use
  Company Number: PHEH2004US09642

PATIENT
  Age: 76 Year
  Sex: Male

DRUGS (25)
  1. FLUOROURACIL [Concomitant]
     Indication: NON-SMALL CELL LUNG CANCER
  2. LEUCOVORIN CALCIUM [Concomitant]
     Indication: NON-SMALL CELL LUNG CANCER
  3. CALCITRIOL [Concomitant]
  4. VIOXX [Concomitant]
     Dosage: 25 MG, UNK
     Dates: start: 19970101
  5. DIOVAN [Concomitant]
     Dosage: 160 UNK, UNK
  6. TESTOSTERONE [Concomitant]
     Dates: start: 20030701
  7. LOVENOX [Concomitant]
     Indication: CARDIAC FAILURE CONGESTIVE
     Dosage: 120 UNK, UNK
     Dates: start: 20040701
  8. SYNTHROID [Concomitant]
     Dosage: .1 UNK, QD
     Dates: start: 19970101
  9. ACIPHEX [Concomitant]
     Dosage: 1/QD
     Dates: start: 20040101
  10. KLONOPIN [Concomitant]
     Dosage: UNK, PRN
     Dates: start: 20030101
  11. FUROSEMIDE [Concomitant]
     Dosage: 40 MG, QD
     Dates: start: 20030101
  12. ADVAIR DISKUS 100/50 [Concomitant]
     Dosage: 1/BID
  13. CLARITIN-D [Concomitant]
     Dates: start: 20030101
  14. WARFARIN [Concomitant]
     Dates: start: 20040101
  15. SINGULAIR [Concomitant]
     Dosage: 10 MG, UNK
     Dates: start: 19980101
  16. VIAGRA [Concomitant]
     Dosage: UNK, PRN
     Dates: start: 19990101
  17. LUPRON [Concomitant]
     Indication: PROSTATE CANCER
     Dosage: Q12WEEKS
     Dates: start: 19940101, end: 19950101
  18. FLUTAMIDE [Concomitant]
     Indication: PROSTATE CANCER
     Dates: start: 19940101, end: 19950101
  19. CASODEX [Concomitant]
     Indication: PROSTATE CANCER
     Dates: start: 19950101, end: 19970101
  20. PROSCAR [Concomitant]
     Dates: start: 19970101
  21. THALIDOMIDE [Concomitant]
     Dates: start: 20020101
  22. VITAMIN B6 [Concomitant]
  23. AVODART [Concomitant]
     Dosage: .5 MG, UNK
  24. ANDROGEL [Concomitant]
     Dosage: 12.5 MG, UNK
  25. AREDIA [Suspect]
     Dosage: 90-120/VARIABLE
     Dates: start: 19970101

REACTIONS (3)
  - BONE DISORDER [None]
  - JAW DISORDER [None]
  - OSTEONECROSIS [None]
